FAERS Safety Report 4424322-3 (Version None)
Quarter: 2004Q3

REPORT INFORMATION
  Report Type: 
  Country: None (occurrence: None)
  Receive Date: 20040809
  Receipt Date: 20040730
  Transmission Date: 20050211
  Serious: Yes (Hospitalization, Disabling, Other)
  Sender: FDA-Public Use
  Company Number: 2004203652US

PATIENT
  Age: 75 Year
  Sex: Female

DRUGS (4)
  1. ALDACTAZIDE [Suspect]
     Indication: BLOOD PRESSURE
     Dosage: 25 MG, QD, ORAL
     Route: 048
     Dates: start: 19980101, end: 20040501
  2. POTASSIUM [Concomitant]
  3. MACRODANTIN [Concomitant]
  4. DARVOCET-N 100 [Concomitant]

REACTIONS (19)
  - ABASIA [None]
  - ASTHENIA [None]
  - BLADDER OPERATION [None]
  - DEMENTIA [None]
  - DRUG HYPERSENSITIVITY [None]
  - FACE INJURY [None]
  - FALL [None]
  - HEAD INJURY [None]
  - HYPOAESTHESIA [None]
  - OEDEMA PERIPHERAL [None]
  - OPEN FRACTURE [None]
  - PAIN IN EXTREMITY [None]
  - PERIORBITAL HAEMATOMA [None]
  - RASH MACULAR [None]
  - SCAR [None]
  - SKIN DISCOLOURATION [None]
  - SWELLING [None]
  - UPPER LIMB FRACTURE [None]
  - URINARY TRACT INFECTION [None]
